FAERS Safety Report 7680630-4 (Version None)
Quarter: 2011Q3

REPORT INFORMATION
  Report Type: 
  Country: None (occurrence: None)
  Receive Date: 20110812
  Receipt Date: 20110801
  Transmission Date: 20111222
  Serious: Yes (Other)
  Sender: FDA-Public Use
  Company Number: US-ROCHE-794455

PATIENT
  Sex: Female

DRUGS (1)
  1. BONIVA [Suspect]
     Route: 042

REACTIONS (3)
  - COUGH [None]
  - BURNING SENSATION [None]
  - LARYNGOSPASM [None]
